FAERS Safety Report 5925854-9 (Version None)
Quarter: 2008Q3

REPORT INFORMATION
  Report Type: 
  Country: None (occurrence: None)
  Receive Date: 20080923
  Receipt Date: 20080711
  Transmission Date: 20090109
  Serious: Yes (Other)
  Sender: FDA-Public Use
  Company Number: WAES 0807USA02267

PATIENT
  Age: 65 Year
  Sex: Male

DRUGS (13)
  1. VYTORIN [Suspect]
     Dosage: PO
     Route: 048
     Dates: end: 20050908
  2. ATENOLOL [Suspect]
     Dates: end: 20050901
  3. ADVAIR DISKUS 100/50 [Concomitant]
  4. ALLEGRA [Concomitant]
  5. CENTRUM SILVER [Concomitant]
  6. CITRUCEL (CALCIUM CARBONATE (+) [Concomitant]
  7. CLINORIL [Concomitant]
  8. PLAVIX [Concomitant]
  9. PRILOSEC [Concomitant]
  10. ZETIA [Concomitant]
  11. ASPIRIN [Concomitant]
  12. POTASSIUM (UNSPECIFIED) [Concomitant]
  13. PREDNISONE [Concomitant]

REACTIONS (4)
  - ANAEMIA [None]
  - ASTHMA [None]
  - MYOSITIS [None]
  - RHABDOMYOLYSIS [None]
